FAERS Safety Report 5648016-1 (Version None)
Quarter: 2008Q1

REPORT INFORMATION
  Report Type: 
  Country: None (occurrence: None)
  Receive Date: 20080229
  Receipt Date: 20080229
  Transmission Date: 20080703
  Serious: Yes (Hospitalization)
  Sender: FDA-Public Use
  Company Number: None

PATIENT
  Sex: Male
  Weight: 88 kg

DRUGS (3)
  1. CYTARABINE [Suspect]
     Dosage: 2912 MG
     Dates: end: 20080211
  2. DAUNORUBICIN HCL [Suspect]
     Dosage: 750 MG
     Dates: end: 20080207
  3. G-CSF (FILGRASTIM, AMGEN) [Suspect]
     Dosage: 1920 MCG
     Dates: end: 20080225

REACTIONS (2)
  - CAECITIS [None]
  - INTESTINAL PERFORATION [None]
